FAERS Safety Report 7954291-0 (Version None)
Quarter: 2011Q4

REPORT INFORMATION
  Report Type: 
  Country: None (occurrence: None)
  Receive Date: 20111202
  Receipt Date: 20111130
  Transmission Date: 20120403
  Serious: No
  Sender: FDA-Public Use
  Company Number: US-PFIZER INC-2011292990

PATIENT
  Sex: Female
  Weight: 74.376 kg

DRUGS (2)
  1. ADVIL PM [Suspect]
     Indication: SLEEP DISORDER
     Dosage: UNK
     Route: 048
     Dates: start: 20110101
  2. ADVIL PM [Suspect]
     Dosage: 400 MG, DAILY
     Route: 048
     Dates: start: 20110101

REACTIONS (2)
  - ERYTHEMA [None]
  - DRY SKIN [None]
